FAERS Safety Report 7790600-3 (Version None)
Quarter: 2011Q3

REPORT INFORMATION
  Report Type: 
  Country: None (occurrence: None)
  Receive Date: 20110930
  Receipt Date: 20110922
  Transmission Date: 20111222
  Serious: Yes (Hospitalization, Other)
  Sender: FDA-Public Use
  Company Number: US-US-EMD SERONO, INC.-7058322

PATIENT
  Sex: Male

DRUGS (5)
  1. SAIZEN [Suspect]
     Indication: AGGRESSION
     Route: 058
     Dates: start: 20030312, end: 20040312
  2. LEXAPRO [Concomitant]
     Indication: PRODUCT USED FOR UNKNOWN INDICATION
  3. SYNTHROID [Concomitant]
     Route: 048
     Dates: start: 20030602
  4. SAIZEN [Suspect]
     Route: 058
     Dates: start: 20050420, end: 20060320
  5. METADATE CD [Concomitant]
     Indication: PRODUCT USED FOR UNKNOWN INDICATION

REACTIONS (2)
  - SUICIDAL IDEATION [None]
  - AGGRESSION [None]
